FAERS Safety Report 17202045 (Version 1)
Quarter: 2019Q4

REPORT INFORMATION
  Report Type: Spontaneous
  Country: PR (occurrence: PR)
  Receive Date: 20191226
  Receipt Date: 20191226
  Transmission Date: 20200122
  Serious: Yes (Hospitalization)
  Sender: FDA-Public Use
  Company Number: PR-GUERBET-PR-20190029

PATIENT
  Age: 70 Year
  Sex: Female
  Weight: 54 kg

DRUGS (1)
  1. OPTIRAY [Suspect]
     Active Substance: IOVERSOL
     Indication: COMPUTERISED TOMOGRAM
     Route: 042
     Dates: start: 20191211, end: 20191211

REACTIONS (1)
  - Dizziness [Recovering/Resolving]

NARRATIVE: CASE EVENT DATE: 20191211
